FAERS Safety Report 9129166 (Version 2)
Quarter: 2013Q1

REPORT INFORMATION
  Report Type: Spontaneous
  Country: JP (occurrence: JP)
  Receive Date: 20130228
  Receipt Date: 20130311
  Transmission Date: 20140127
  Serious: No
  Sender: FDA-Public Use
  Company Number: JP-ASTRAZENECA-2013SE11970

PATIENT
  Age: 54 Year
  Sex: Female

DRUGS (2)
  1. CRESTOR [Suspect]
     Indication: TYPE IIA HYPERLIPIDAEMIA
     Route: 048
     Dates: start: 20101203, end: 20130129
  2. EPADEL [Concomitant]
     Route: 048
     Dates: end: 20130129

REACTIONS (2)
  - Drug-induced liver injury [Recovering/Resolving]
  - Blood creatine phosphokinase increased [Recovering/Resolving]
